FAERS Safety Report 8824670 (Version 1)
Quarter: 2012Q4

REPORT INFORMATION
  Report Type: 
  Country: CA (occurrence: CA)
  Receive Date: 20121004
  Receipt Date: 20121004
  Transmission Date: 20130627
  Serious: Yes (Death, Life-Threatening)
  Sender: FDA-Public Use
  Company Number: PHHY2012CA078988

PATIENT
  Sex: Female

DRUGS (3)
  1. ZOMETA [Suspect]
     Indication: BREAST CANCER
     Route: 042
     Dates: start: 201208
  2. PAMIDRONATE [Suspect]
     Indication: BREAST CANCER
  3. PAMIDRONATE [Suspect]
     Dates: start: 20120730

REACTIONS (3)
  - Death [Fatal]
  - Metastases to liver [Unknown]
  - Metastases to bone [Unknown]
